FAERS Safety Report 4706480-6 (Version None)
Quarter: 2005Q3

REPORT INFORMATION
  Report Type: 
  Country: None (occurrence: None)
  Receive Date: 20050705
  Receipt Date: 20050613
  Transmission Date: 20060218
  Serious: Yes (Other)
  Sender: FDA-Public Use
  Company Number: JP-GLAXOSMITHKLINE-B0384276A

PATIENT
  Age: 47 Year
  Sex: Female

DRUGS (9)
  1. FLUTIDE [Suspect]
     Indication: ASTHMA
     Dosage: 200MCG TWICE PER DAY
     Route: 055
     Dates: start: 20050606, end: 20050607
  2. PAXIL [Suspect]
     Route: 048
  3. NORITREN [Suspect]
     Route: 048
  4. DEPAS [Suspect]
     Route: 048
  5. LEXOTAN [Suspect]
     Route: 048
  6. BENZALIN [Suspect]
     Route: 048
  7. LENDORMIN [Suspect]
     Route: 048
  8. PREMARIN [Concomitant]
     Route: 065
  9. PARIET [Concomitant]
     Route: 048

REACTIONS (4)
  - DEPRESSED LEVEL OF CONSCIOUSNESS [None]
  - DIZZINESS [None]
  - HYPOAESTHESIA ORAL [None]
  - TONGUE PARALYSIS [None]
